FAERS Safety Report 7046174-8 (Version None)
Quarter: 2010Q4

REPORT INFORMATION
  Report Type: 
  Country: None (occurrence: None)
  Receive Date: 20101014
  Receipt Date: 20101012
  Transmission Date: 20110411
  Serious: Yes (Life-Threatening, Hospitalization, Other)
  Sender: FDA-Public Use
  Company Number: A0875217A

PATIENT
  Age: 55 Year
  Sex: Female

DRUGS (2)
  1. ARZERRA [Suspect]
     Dosage: 2000MG WEEKLY
     Route: 065
     Dates: start: 20100629, end: 20100802
  2. DECADRON [Suspect]
     Indication: PREMEDICATION
     Route: 065

REACTIONS (2)
  - BLOOD GLUCOSE INCREASED [None]
  - DIABETES MELLITUS [None]
